FAERS Safety Report 9337151 (Version 1)
Quarter: 2013Q2

REPORT INFORMATION
  Report Type: Spontaneous
  Country: US (occurrence: US)
  Receive Date: 20130607
  Receipt Date: 20130607
  Transmission Date: 20140414
  Serious: No
  Sender: FDA-Public Use
  Company Number: US-PFIZER INC-2013170166

PATIENT
  Age: 80 Year
  Sex: Female

DRUGS (1)
  1. AROMASIN [Suspect]
     Indication: BREAST DISORDER
     Dosage: 25 MG, 1X/DAY
     Dates: start: 20130318

REACTIONS (2)
  - Cardiac disorder [Unknown]
  - Renal disorder [Unknown]
